FAERS Safety Report 9981049 (Version 1)
Quarter: 2014Q1

REPORT INFORMATION
  Report Type: Spontaneous
  Country: US (occurrence: US)
  Receive Date: 20140307
  Receipt Date: 20140307
  Transmission Date: 20141002
  Serious: No
  Sender: FDA-Public Use
  Company Number: US-BAYER-2014-035324

PATIENT
  Sex: Male

DRUGS (5)
  1. BETASERON [Suspect]
     Dosage: 0.3 MG, QOD
     Route: 058
     Dates: start: 1999
  2. SOLU-MEDROL [Concomitant]
     Dosage: 125 MG, UNK
     Route: 051
     Dates: start: 2012
  3. METOPROLOL [Concomitant]
  4. DOXAZOSIN [Concomitant]
  5. DIOVAN HCT [Concomitant]

REACTIONS (1)
  - Injection site irritation [Unknown]
